FAERS Safety Report 5563968-6 (Version None)
Quarter: 2007Q4

REPORT INFORMATION
  Report Type: 
  Country: None (occurrence: None)
  Receive Date: 20071217
  Receipt Date: 20071205
  Transmission Date: 20080405
  Serious: Yes (Hospitalization, Other)
  Sender: FDA-Public Use
  Company Number: US-ELI_LILLY_AND_COMPANY-US200712001017

PATIENT
  Sex: Female

DRUGS (9)
  1. BYETTA [Suspect]
     Indication: TYPE 1 DIABETES MELLITUS
     Dosage: 5 UG, 2/D
     Route: 058
     Dates: start: 20060101, end: 20060101
  2. BYETTA [Suspect]
     Dosage: 10 UG, 2/D
     Route: 058
     Dates: start: 20060101
  3. BYETTA [Suspect]
     Dosage: 10 UG, 2/D
     Route: 058
     Dates: end: 20071102
  4. LOPRESSOR [Concomitant]
     Indication: BLOOD PRESSURE
     Dosage: 50 MG, UNKNOWN
     Route: 048
     Dates: end: 20071101
  5. LOPRESSOR [Concomitant]
     Dosage: 100 MG, UNK
     Route: 048
     Dates: start: 20071101
  6. NOVOLOG [Concomitant]
     Indication: DIABETES MELLITUS
     Dosage: 10 U, EACH MORNING
     Route: 058
     Dates: start: 20060101
  7. NOVOLOG [Concomitant]
     Dosage: 15 U, EACH EVENING
     Route: 058
     Dates: start: 20060101
  8. LEVEMIR [Concomitant]
     Indication: DIABETES MELLITUS
     Dosage: 40 MG, 2/D
     Dates: start: 20060101
  9. LORCET [Concomitant]
     Indication: NEURALGIA
     Dosage: UNK, UNKNOWN
     Route: 048
     Dates: end: 20071101

REACTIONS (18)
  - ABDOMINAL DISTENSION [None]
  - ABDOMINAL PAIN [None]
  - ASTHENIA [None]
  - BLOOD GLUCOSE INCREASED [None]
  - BLOOD PRESSURE INCREASED [None]
  - DEHYDRATION [None]
  - DIARRHOEA [None]
  - HEART RATE INCREASED [None]
  - HEPATOMEGALY [None]
  - LIPASE INCREASED [None]
  - LIPIDS INCREASED [None]
  - MUSCULOSKELETAL CHEST PAIN [None]
  - NAUSEA [None]
  - NON-CARDIAC CHEST PAIN [None]
  - PANCREATITIS [None]
  - PRURITUS [None]
  - SPLENOMEGALY [None]
  - VISUAL ACUITY REDUCED [None]
